FAERS Safety Report 8252881-1 (Version None)
Quarter: 2012Q2

REPORT INFORMATION
  Report Type: 
  Country: None (occurrence: None)
  Receive Date: 20120402
  Receipt Date: 20120119
  Transmission Date: 20120825
  Serious: No
  Sender: FDA-Public Use
  Company Number: US-ABBOTT-12P-163-0895776-00

PATIENT
  Sex: Male
  Weight: 90.8 kg

DRUGS (9)
  1. SYMBICORT [Concomitant]
     Indication: ASTHMA
  2. CALCIUM CARBONATE [Concomitant]
     Indication: PRODUCT USED FOR UNKNOWN INDICATION
  3. VITAMIN D [Concomitant]
     Indication: PRODUCT USED FOR UNKNOWN INDICATION
  4. ANDROGEL [Suspect]
     Indication: BLOOD TESTOSTERONE DECREASED
     Dosage: USES THE PACKET.
     Dates: start: 20100501, end: 20100901
  5. ALLEGRA-D 12 HOUR [Concomitant]
     Indication: HYPERSENSITIVITY
  6. ANDROGEL [Suspect]
     Dosage: 1/3 PACKET DAILY
     Dates: start: 20110301
  7. PRILOSEC [Concomitant]
     Indication: PRODUCT USED FOR UNKNOWN INDICATION
  8. LISINOPRIL [Concomitant]
     Indication: HYPERTENSION
  9. ANDROGEL [Suspect]
     Dosage: 1/2 PACKET PER DAY
     Dates: start: 20100901, end: 20110301

REACTIONS (5)
  - FATIGUE [None]
  - APATHY [None]
  - ERECTILE DYSFUNCTION [None]
  - ANGER [None]
  - MYALGIA [None]
